FAERS Safety Report 19108362 (Version 1)
Quarter: 2021Q2

REPORT INFORMATION
  Report Type: Spontaneous
  Country: PL (occurrence: PL)
  Receive Date: 20210408
  Receipt Date: 20210408
  Transmission Date: 20210717
  Serious: Yes (Hospitalization, Other)
  Sender: FDA-Public Use
  Company Number: NVSC2021PL072056

PATIENT
  Age: 66 Year
  Sex: Male

DRUGS (2)
  1. DABRAFENIB [Suspect]
     Active Substance: DABRAFENIB
     Indication: PRODUCT USED FOR UNKNOWN INDICATION
     Dosage: UNK
     Route: 065
     Dates: start: 202009
  2. TRAMETINIB [Suspect]
     Active Substance: TRAMETINIB
     Indication: PRODUCT USED FOR UNKNOWN INDICATION
     Dosage: UNK
     Route: 065
     Dates: start: 202009

REACTIONS (17)
  - Respiratory failure [Unknown]
  - Anaemia [Unknown]
  - Neoplasm [Unknown]
  - Rash erythematous [Unknown]
  - Interstitial lung disease [Unknown]
  - Troponin T increased [Unknown]
  - Blood lactate dehydrogenase increased [Unknown]
  - Pneumonitis [Unknown]
  - Blood thyroid stimulating hormone increased [Unknown]
  - Fibrin D dimer increased [Unknown]
  - Blood creatine phosphokinase increased [Unknown]
  - Chills [Unknown]
  - Pyrexia [Unknown]
  - Asthenia [Unknown]
  - COVID-19 [Unknown]
  - Synostosis [Unknown]
  - Blood glucose increased [Unknown]

NARRATIVE: CASE EVENT DATE: 202103
